FAERS Safety Report 9344197 (Version 1)
Quarter: 2013Q2

REPORT INFORMATION
  Report Type: Spontaneous
  Country: JP (occurrence: JP)
  Receive Date: 20130612
  Receipt Date: 20130612
  Transmission Date: 20140414
  Serious: Yes (Hospitalization)
  Sender: FDA-Public Use
  Company Number: JP-LUNDBECK-DKLU1090582

PATIENT
  Age: 6 Year
  Sex: Male
  Weight: 21 kg

DRUGS (6)
  1. ONFI [Suspect]
     Indication: PARTIAL SEIZURES
     Route: 048
  2. ONFI [Suspect]
     Route: 048
  3. ONFI [Suspect]
     Route: 048
  4. ONFI [Suspect]
     Route: 048
  5. SODIUM VALPROATE [Concomitant]
     Indication: PRODUCT USED FOR UNKNOWN INDICATION
  6. KEPPRA [Concomitant]
     Indication: PRODUCT USED FOR UNKNOWN INDICATION

REACTIONS (6)
  - Drug level increased [Recovering/Resolving]
  - Eyelid ptosis [Recovered/Resolved]
  - Dyslalia [Recovered/Resolved]
  - Impulse-control disorder [Unknown]
  - Dizziness [Unknown]
  - Somnolence [Recovered/Resolved]
